FAERS Safety Report 15448988 (Version 1)
Quarter: 2018Q3

REPORT INFORMATION
  Report Type: Spontaneous
  Country: US (occurrence: US)
  Receive Date: 20180926
  Receipt Date: 20180926
  Transmission Date: 20181010
  Serious: Yes (Other)
  Sender: FDA-Public Use
  Company Number: None

PATIENT
  Age: 28 Year
  Sex: Male
  Weight: 73.3 kg

DRUGS (14)
  1. RENVELA [Concomitant]
     Active Substance: SEVELAMER CARBONATE
  2. ATORVASTATIN [Concomitant]
     Active Substance: ATORVASTATIN
  3. CALCITRIOL. [Concomitant]
     Active Substance: CALCITRIOL
  4. GENTAMICIN. [Concomitant]
     Active Substance: GENTAMICIN
  5. MIRTAZAPINE. [Concomitant]
     Active Substance: MIRTAZAPINE
  6. VITAMIN B COMPLEX [Concomitant]
     Active Substance: CYANOCOBALAMIN\DEXPANTHENOL\NIACINAMIDE\PYRIDOXINE HYDROCHLORIDE\RIBOFLAVIN 5^-PHOSPHATE SODIUM\THIAMINE HYDROCHLORIDE\VITAMIN B COMPLEX
  7. MEKTOVI [Suspect]
     Active Substance: BINIMETINIB
     Indication: MALIGNANT MELANOMA
     Route: 048
     Dates: start: 20180829
  8. MULTIVITAMINS [Concomitant]
     Active Substance: VITAMINS
  9. ONDANSETRON [Concomitant]
     Active Substance: ONDANSETRON
  10. SODIUM BICARBONATE. [Concomitant]
     Active Substance: SODIUM BICARBONATE
  11. BRAFTOVI [Suspect]
     Active Substance: ENCORAFENIB
     Indication: MALIGNANT MELANOMA
     Route: 048
     Dates: start: 20180829
  12. VITAMIN D3 [Concomitant]
     Active Substance: CHOLECALCIFEROL
  13. DILTIAZEM. [Concomitant]
     Active Substance: DILTIAZEM
  14. TACROLIMUS. [Concomitant]
     Active Substance: TACROLIMUS

REACTIONS (2)
  - Fatigue [None]
  - Nausea [None]
